FAERS Safety Report 7654027-7 (Version None)
Quarter: 2011Q3

REPORT INFORMATION
  Report Type: 
  Country: None (occurrence: None)
  Receive Date: 20110803
  Receipt Date: 20110722
  Transmission Date: 20111222
  Serious: Yes (Hospitalization, Other)
  Sender: FDA-Public Use
  Company Number: PHHY2011CA63864

PATIENT
  Sex: Female

DRUGS (6)
  1. CLOZAPINE [Suspect]
     Dosage: 75 MG, QHS
     Route: 048
  2. CLOZAPINE [Suspect]
     Indication: SCHIZOPHRENIA
     Dosage: 200 MG, QHS
     Route: 048
     Dates: start: 20010531
  3. CLOZAPINE [Suspect]
     Dosage: 25 MG, QHS
     Route: 048
  4. AZITHROMYCIN [Concomitant]
     Dosage: 250 MG, UNK
  5. TOLTERODINE TARTRATE [Concomitant]
     Dosage: 4 MG, DAILY
  6. SERTRALINE HYDROCHLORIDE [Concomitant]
     Dosage: 150 MG, DAILY

REACTIONS (10)
  - PNEUMONIA [None]
  - THROMBOCYTOPENIA [None]
  - WHITE BLOOD CELL COUNT DECREASED [None]
  - HEPATIC STEATOSIS [None]
  - RESPIRATORY DISTRESS [None]
  - DEPRESSED LEVEL OF CONSCIOUSNESS [None]
  - DIARRHOEA [None]
  - NEUTROPENIA [None]
  - PLATELET COUNT DECREASED [None]
  - UROSEPSIS [None]
